FAERS Safety Report 6116126-0 (Version None)
Quarter: 2009Q1

REPORT INFORMATION
  Report Type: 
  Country: None (occurrence: None)
  Receive Date: 20090314
  Receipt Date: 20081202
  Transmission Date: 20090719
  Serious: No
  Sender: FDA-Public Use
  Company Number: US-ABBOTT-08P-163-0489839-00

PATIENT
  Sex: Female
  Weight: 83.99 kg

DRUGS (3)
  1. HUMIRA [Suspect]
     Indication: CROHN'S DISEASE
     Route: 058
     Dates: start: 20080201
  2. DICYCLOMINE HCL [Concomitant]
     Indication: CROHN'S DISEASE
  3. CHOLESTYRAMINE [Concomitant]
     Indication: CROHN'S DISEASE

REACTIONS (4)
  - ANTINUCLEAR ANTIBODY POSITIVE [None]
  - HYPOTHYROIDISM [None]
  - LENTIGO [None]
  - RHEUMATOID ARTHRITIS [None]
